FAERS Safety Report 9522170 (Version 1)
Quarter: 2013Q1

REPORT INFORMATION
  Report Type: Spontaneous
  Country: US (occurrence: None)
  Receive Date: 20130305
  Receipt Date: 20130305
  Transmission Date: 20140127
  Serious: Yes (Hospitalization)
  Sender: FDA-Public Use
  Company Number: 163-21880-12032210

PATIENT
  Age: 54 Year
  Sex: Male
  Weight: 75.3 kg

DRUGS (21)
  1. REVLIMID [Suspect]
     Indication: PLASMA CELL MYELOMA
     Dosage: 25 MG, QD DAYS 1-21 OF CYCLE, PO
     Route: 048
     Dates: start: 20120323
  2. DEXAMETHASONE [Concomitant]
  3. ACYCLOVIR [Concomitant]
  4. LORAZEPAM [Concomitant]
  5. PROCHLORPERAZINE [Concomitant]
  6. LOPERAMIDE [Concomitant]
  7. SODIUM BICARBONATE [Concomitant]
  8. CENTRUM [Concomitant]
  9. ONDANSETRON [Concomitant]
  10. BACLOFEN [Concomitant]
  11. VITAMIN D (ERGOCALCIFEROL) [Concomitant]
  12. AMLODIPINE [Concomitant]
  13. BACTRIM [Concomitant]
  14. OXYCODONE [Concomitant]
  15. AZITHROMYCIN [Concomitant]
  16. LORTAB (VICODIN) [Concomitant]
  17. HYCODAN (HYDROCODONE BITARTRATE) [Concomitant]
  18. OMEPRAZOLE [Concomitant]
  19. PENCILLIN V [Concomitant]
  20. SULFAMETHOXAZOLE [Concomitant]
  21. VITAMIN A (RETINOL) [Concomitant]

REACTIONS (2)
  - Pneumonia [None]
  - Neuropathy peripheral [None]
